FAERS Safety Report 13827415 (Version 1)
Quarter: 2017Q3

REPORT INFORMATION
  Report Type: Spontaneous
  Country: US (occurrence: US)
  Receive Date: 20170802
  Receipt Date: 20170802
  Transmission Date: 20171127
  Serious: No
  Sender: FDA-Public Use
  Company Number: US-ROCHE-656715

PATIENT
  Age: 79 Year
  Sex: Female

DRUGS (17)
  1. CALCIUM [Concomitant]
     Active Substance: CALCIUM
     Route: 065
  2. BONIVA [Suspect]
     Active Substance: IBANDRONATE SODIUM
     Indication: OSTEOPOROSIS
     Route: 048
  3. ZESTRIL [Concomitant]
     Active Substance: LISINOPRIL
     Route: 065
  4. OCUVITE [Concomitant]
     Active Substance: VITAMINS
     Route: 065
  5. FOLIC ACID. [Concomitant]
     Active Substance: FOLIC ACID
     Route: 065
  6. MICRO-K [Concomitant]
     Active Substance: POTASSIUM CHLORIDE
     Route: 065
  7. NORVASC [Concomitant]
     Active Substance: AMLODIPINE BESYLATE
     Route: 065
  8. TENAX [Concomitant]
     Route: 065
  9. HYDRODIURIL [Concomitant]
     Active Substance: HYDROCHLOROTHIAZIDE
     Route: 065
  10. FOLINIC ACID [Concomitant]
     Active Substance: LEUCOVORIN
     Route: 065
  11. PRILOSEC [Concomitant]
     Active Substance: OMEPRAZOLE MAGNESIUM
     Route: 065
  12. CLIMARA [Concomitant]
     Active Substance: ESTRADIOL
     Route: 065
  13. METHOTREXATE. [Concomitant]
     Active Substance: METHOTREXATE
     Route: 065
  14. DARVOCET [Concomitant]
     Active Substance: ACETAMINOPHEN\PROPOXYPHENE HYDROCHLORIDE
     Route: 065
  15. CRESTOR [Concomitant]
     Active Substance: ROSUVASTATIN CALCIUM
     Route: 065
  16. LYRICA [Concomitant]
     Active Substance: PREGABALIN
     Route: 065
  17. PREDNISONE. [Concomitant]
     Active Substance: PREDNISONE
     Route: 065

REACTIONS (2)
  - Dyspepsia [Unknown]
  - Oesophageal pain [Unknown]
